FAERS Safety Report 16997342 (Version 6)
Quarter: 2019Q4

REPORT INFORMATION
  Report Type: Spontaneous
  Country: PL (occurrence: PL)
  Receive Date: 20191106
  Receipt Date: 20191206
  Transmission Date: 20200122
  Serious: Yes (Hospitalization, Other)
  Sender: FDA-Public Use
  Company Number: PL-AUROBINDO-AUR-APL-2019-070487

PATIENT
  Age: 45 Year
  Sex: Female

DRUGS (12)
  1. KETOPROFEN. [Suspect]
     Active Substance: KETOPROFEN
     Indication: PAIN
     Dosage: 50 MILLIGRAM, WHEN AS NEEDED, PROBABLY EVEN UPTO 6-8 TABLETS PER 24 HOURS
     Route: 065
  2. HYPURIN ISOPHANE [Concomitant]
     Indication: TYPE 1 DIABETES MELLITUS
     Dosage: UNK, ONCE A DAY, INJECTED AT BEDTIME
     Route: 065
  3. NIMESULIDE [Suspect]
     Active Substance: NIMESULIDE
     Indication: PAIN
     Dosage: UNK
     Route: 065
  4. LEVOTHYROXINE. [Concomitant]
     Active Substance: LEVOTHYROXINE
     Indication: HYPOTHYROIDISM
     Dosage: 150 MICROGRAM, ONCE A DAY
     Route: 065
  5. FUROSEMIDE. [Suspect]
     Active Substance: FUROSEMIDE
     Indication: OEDEMA PERIPHERAL
  6. KETOPROFEN. [Suspect]
     Active Substance: KETOPROFEN
     Indication: ARTHRALGIA
  7. FUROSEMIDE. [Suspect]
     Active Substance: FUROSEMIDE
     Indication: SWELLING
     Dosage: 4 DOSAGE FORM, ONCE A DAY,UP TO 4 TABLETS / DAY
     Route: 065
  8. PARACETAMOL [Suspect]
     Active Substance: ACETAMINOPHEN
     Indication: PAIN
     Dosage: UNK
     Route: 065
  9. PARACETAMOL [Suspect]
     Active Substance: ACETAMINOPHEN
     Indication: ARTHRALGIA
  10. KETOPROFEN. [Suspect]
     Active Substance: KETOPROFEN
     Indication: PAIN IN EXTREMITY
  11. NIMESULIDE [Suspect]
     Active Substance: NIMESULIDE
     Indication: ARTHRALGIA
  12. INSULIN ASPART [Concomitant]
     Active Substance: INSULIN ASPART
     Indication: TYPE 1 DIABETES MELLITUS
     Dosage: UNK,PERMANENT DOSES
     Route: 065

REACTIONS (5)
  - Gastritis erosive [Recovered/Resolved]
  - Intentional product misuse [Unknown]
  - Drug abuse [Recovered/Resolved]
  - Iron deficiency anaemia [Not Recovered/Not Resolved]
  - Contraindicated product administered [Unknown]
